FAERS Safety Report 7579978-3 (Version None)
Quarter: 2011Q2

REPORT INFORMATION
  Report Type: 
  Country: None (occurrence: None)
  Receive Date: 20110629
  Receipt Date: 20110623
  Transmission Date: 20111010
  Serious: Yes (Other)
  Sender: FDA-Public Use
  Company Number: CA-JNJFOC-20110610735

PATIENT
  Sex: Female
  Weight: 131.54 kg

DRUGS (2)
  1. LEVOTHYROXINE SODIUM [Concomitant]
     Dosage: QAM
  2. STELARA [Suspect]
     Indication: PSORIASIS
     Route: 058
     Dates: start: 20090401

REACTIONS (4)
  - INTESTINAL PERFORATION [None]
  - GALLBLADDER DISORDER [None]
  - ULCER [None]
  - ABDOMINAL HERNIA [None]
